FAERS Safety Report 16069538 (Version 3)
Quarter: 2019Q2

REPORT INFORMATION
  Report Type: Report from Study
  Country: CA (occurrence: CA)
  Receive Date: 20190314
  Receipt Date: 20190502
  Transmission Date: 20190711
  Serious: Yes (Other)
  Sender: FDA-Public Use
  Company Number: CA-AMGEN-CANCT2019039908

PATIENT
  Age: 32 Year
  Sex: Female

DRUGS (7)
  1. AIMOVIG [Suspect]
     Active Substance: ERENUMAB-AOOE
     Dosage: UNK, QW (3 DOSES)
     Route: 058
     Dates: start: 201802, end: 201902
  2. TYLENOL WITH CODEIN [CODEINE PHOSPHATE;PARACETAMOL] [Concomitant]
     Indication: PRODUCT USED FOR UNKNOWN INDICATION
     Dosage: UNK
     Route: 065
  3. NUVARING [Concomitant]
     Active Substance: ETHINYL ESTRADIOL\ETONOGESTREL
     Indication: PRODUCT USED FOR UNKNOWN INDICATION
     Dosage: UNK
     Route: 065
  4. AIMOVIG [Suspect]
     Active Substance: ERENUMAB-AOOE
     Dosage: 70 MG, UNK
     Route: 065
     Dates: end: 20190301
  5. AIMOVIG [Suspect]
     Active Substance: ERENUMAB-AOOE
     Dosage: 70 MG, UNK
     Route: 065
  6. BOTOX [Concomitant]
     Active Substance: ONABOTULINUMTOXINA
     Indication: PRODUCT USED FOR UNKNOWN INDICATION
     Dosage: UNK
     Route: 065
  7. AIMOVIG [Suspect]
     Active Substance: ERENUMAB-AOOE
     Indication: MIGRAINE
     Dosage: 70 MG, UNK
     Route: 065
     Dates: start: 20190111

REACTIONS (10)
  - Pollakiuria [Recovered/Resolved]
  - Insomnia [Recovered/Resolved]
  - Gastric ulcer [Recovered/Resolved]
  - Oesophageal ulcer [Recovered/Resolved]
  - Gastrointestinal disorder [Recovered/Resolved]
  - Rash [Recovered/Resolved]
  - Drug ineffective [Unknown]
  - Pruritus [Recovered/Resolved]
  - Gastrooesophageal reflux disease [Recovered/Resolved]
  - Asthma [Recovered/Resolved]

NARRATIVE: CASE EVENT DATE: 201812
